FAERS Safety Report 6490568-6 (Version None)
Quarter: 2009Q4

REPORT INFORMATION
  Report Type: 
  Country: None (occurrence: None)
  Receive Date: 20091211
  Receipt Date: 20091124
  Transmission Date: 20100525
  Serious: Yes (Death)
  Sender: FDA-Public Use
  Company Number: US-BAYER-200941156NA

PATIENT
  Sex: Male

DRUGS (10)
  1. MAGNEVIST [Suspect]
     Indication: NUCLEAR MAGNETIC RESONANCE IMAGING
     Dates: start: 20040924, end: 20040924
  2. MAGNEVIST [Suspect]
     Dates: start: 20050708, end: 20050708
  3. MAGNEVIST [Suspect]
     Dates: start: 20050713, end: 20050713
  4. OMNISCAN [Suspect]
     Indication: NUCLEAR MAGNETIC RESONANCE IMAGING
     Dates: start: 20030506, end: 20030506
  5. OMNISCAN [Suspect]
     Dates: start: 20030922, end: 20030922
  6. OMNISCAN [Suspect]
     Dates: start: 20040730, end: 20040730
  7. OMNISCAN [Suspect]
     Dates: start: 20040813, end: 20040813
  8. OMNISCAN [Suspect]
     Dates: start: 20050105, end: 20050105
  9. OMNISCAN [Suspect]
     Dates: start: 20050107, end: 20050107
  10. OMNISCAN [Suspect]
     Dates: start: 20050311, end: 20050311

REACTIONS (14)
  - DEFORMITY [None]
  - GAIT DISTURBANCE [None]
  - HYPOAESTHESIA [None]
  - JOINT RANGE OF MOTION DECREASED [None]
  - MOBILITY DECREASED [None]
  - MUSCLE TIGHTNESS [None]
  - MUSCULAR WEAKNESS [None]
  - MUSCULOSKELETAL STIFFNESS [None]
  - NEPHROGENIC SYSTEMIC FIBROSIS [None]
  - PAIN [None]
  - PRURITUS GENERALISED [None]
  - SKIN DISCOLOURATION [None]
  - SKIN INDURATION [None]
  - SKIN TIGHTNESS [None]
